FAERS Safety Report 21411900 (Version 1)
Quarter: 2022Q4

REPORT INFORMATION
  Report Type: Report from Study
  Country: US (occurrence: US)
  Receive Date: 20221005
  Receipt Date: 20221005
  Transmission Date: 20230112
  Serious: No
  Sender: FDA-Public Use
  Company Number: US-ABBVIE-4138560

PATIENT
  Sex: Female

DRUGS (4)
  1. HUMIRA [Suspect]
     Active Substance: ADALIMUMAB
     Indication: Rheumatoid arthritis
     Route: 058
  2. HUMIRA [Suspect]
     Active Substance: ADALIMUMAB
     Indication: Hidradenitis
  3. Pfizer [Concomitant]
     Indication: Immunisation
     Route: 030
  4. Pfizer [Concomitant]
     Indication: Immunisation
     Dosage: BOOSTER
     Route: 030

REACTIONS (1)
  - Condition aggravated [Unknown]
